FAERS Safety Report 25210866 (Version 5)
Quarter: 2025Q3

REPORT INFORMATION
  Report Type: Spontaneous
  Country: US (occurrence: US)
  Receive Date: 20250417
  Receipt Date: 20250929
  Transmission Date: 20251020
  Serious: Yes (Other)
  Sender: PFIZER
  Company Number: US-PFIZER INC-PV202500044303

PATIENT
  Age: 71 Year
  Sex: Female

DRUGS (2)
  1. IBRANCE [Suspect]
     Active Substance: PALBOCICLIB
     Indication: Breast cancer female
     Dates: end: 20250505
  2. IBRANCE [Suspect]
     Active Substance: PALBOCICLIB
     Dates: end: 202509

REACTIONS (8)
  - Pneumonia [Not Recovered/Not Resolved]
  - Cataract [Recovering/Resolving]
  - White blood cell count decreased [Not Recovered/Not Resolved]
  - Platelet count decreased [Unknown]
  - Neutrophil count decreased [Unknown]
  - Flatulence [Recovered/Resolved]
  - Gastritis [Unknown]
  - Gastrointestinal wall thickening [Unknown]
